FAERS Safety Report 19323250 (Version 2)
Quarter: 2021Q3

REPORT INFORMATION
  Report Type: Spontaneous
  Country: US (occurrence: US)
  Receive Date: 20210528
  Receipt Date: 20210818
  Transmission Date: 20211014
  Serious: No
  Sender: FDA-Public Use
  Company Number: US-BAYER-2021-147187

PATIENT
  Age: 57 Year
  Sex: Female

DRUGS (1)
  1. MIRALAX [Suspect]
     Active Substance: POLYETHYLENE GLYCOL 3350
     Dosage: 1 DF, OM
     Route: 048
     Dates: start: 2017

REACTIONS (3)
  - Product physical consistency issue [None]
  - Feeling abnormal [Recovered/Resolved]
  - Product solubility abnormal [None]

NARRATIVE: CASE EVENT DATE: 20210524
